FAERS Safety Report 11699184 (Version 2)
Quarter: 2015Q4

REPORT INFORMATION
  Report Type: Spontaneous
  Country: TN (occurrence: TN)
  Receive Date: 20151104
  Receipt Date: 20151104
  Transmission Date: 20160304
  Serious: Yes (Other)
  Sender: FDA-Public Use
  Company Number: TN-ANTARES PHARMA, INC.-2015-LIT-ME-0114

PATIENT
  Age: 53 Year
  Sex: Female

DRUGS (2)
  1. METHOTREXATE [Suspect]
     Active Substance: METHOTREXATE
     Dosage: 15 MG, QWK
     Dates: start: 2009
  2. METHOTREXATE [Suspect]
     Active Substance: METHOTREXATE
     Indication: PSORIATIC ARTHROPATHY
     Dosage: 15 MG, QWK
     Dates: start: 2000, end: 2005

REACTIONS (5)
  - Autoimmune hepatitis [None]
  - Asthenia [None]
  - Weight decreased [None]
  - Jaundice [None]
  - Off label use [None]
